FAERS Safety Report 9457674 (Version 1)
Quarter: 2013Q3

REPORT INFORMATION
  Report Type: Spontaneous
  Country: US (occurrence: US)
  Receive Date: 20130814
  Receipt Date: 20130814
  Transmission Date: 20140515
  Serious: Yes (Hospitalization, Other)
  Sender: FDA-Public Use
  Company Number: US-BAYER-2013-096535

PATIENT
  Age: 28 Year
  Sex: Female

DRUGS (18)
  1. YAZ [Suspect]
     Indication: CONTRACEPTION
  2. YASMIN [Suspect]
  3. ZARAH [Suspect]
  4. CYMBALTA [Concomitant]
  5. CYCLOBENZAPRINE [Concomitant]
  6. KETOROLAC [Concomitant]
  7. HYDROCODONE/ACETAMINOPHEN [Concomitant]
  8. AMOXI CLAVULAN AL [Concomitant]
  9. METRONIDAZOLE [Concomitant]
  10. CIPROFLOXACIN [Concomitant]
  11. ONDANSETRON [Concomitant]
  12. OXYCODONE/APAP [Concomitant]
  13. VALTREX [Concomitant]
  14. ZOVIRAX [Concomitant]
  15. IBUPROFEN [Concomitant]
  16. ISOMETHEPTENE/DICHLORALPHENAZONE/APAP [Concomitant]
  17. VICOPROFEN [Concomitant]
  18. PERCOCET [Concomitant]

REACTIONS (2)
  - Cholelithiasis [None]
  - Pulmonary embolism [Recovered/Resolved]
